FAERS Safety Report 9706736 (Version 1)
Quarter: 2013Q4

REPORT INFORMATION
  Report Type: Spontaneous
  Country: US (occurrence: US)
  Receive Date: 20131125
  Receipt Date: 20131125
  Transmission Date: 20140711
  Serious: Yes (Other)
  Sender: FDA-Public Use
  Company Number: US-MYLANLABS-2013S1026062

PATIENT
  Age: 45 Year
  Sex: Female
  Weight: 90.72 kg

DRUGS (12)
  1. FENTANYL TRANSDERMAL SYSTEM [Suspect]
     Indication: PAIN
     Dosage: CHANGES Q72H
     Route: 062
     Dates: start: 201308
  2. TOPROL [Concomitant]
     Indication: BLOOD PRESSURE INCREASED
     Route: 048
  3. NORVASC [Concomitant]
     Indication: BLOOD PRESSURE INCREASED
     Route: 048
  4. LASIX [Concomitant]
     Indication: FLUID RETENTION
     Route: 048
  5. NEXIUM [Concomitant]
     Indication: ABDOMINAL OPERATION
     Route: 048
  6. BENTYL [Concomitant]
     Indication: GASTROINTESTINAL INFLAMMATION
  7. POTASSIUM CHLORIDE [Concomitant]
  8. KLONOPIN [Concomitant]
     Indication: ANXIETY
  9. REMERON [Concomitant]
     Indication: INSOMNIA
  10. LUNESTA [Concomitant]
     Indication: INSOMNIA
  11. PEPCID [Concomitant]
     Indication: ABDOMINAL OPERATION
  12. ZOFRAN [Concomitant]
     Indication: NAUSEA

REACTIONS (3)
  - Drug withdrawal syndrome [Recovered/Resolved]
  - Dehydration [Recovered/Resolved]
  - Incorrect drug administration duration [Recovered/Resolved]
